FAERS Safety Report 10833624 (Version 1)
Quarter: 2015Q1

REPORT INFORMATION
  Report Type: Report from Study
  Country: AU (occurrence: AU)
  Receive Date: 20150219
  Receipt Date: 20150219
  Transmission Date: 20150721
  Serious: Yes (Other)
  Sender: FDA-Public Use
  Company Number: PHHY2015AU017198

PATIENT
  Sex: Male

DRUGS (1)
  1. ACLASTA [Suspect]
     Active Substance: ZOLEDRONIC ACID
     Indication: PRODUCT USED FOR UNKNOWN INDICATION
     Dosage: 5 MG, UNK
     Route: 042

REACTIONS (15)
  - Myocardial ischaemia [Unknown]
  - Spinal fracture [Unknown]
  - Gastrooesophageal reflux disease [Unknown]
  - Cervical spinal stenosis [Unknown]
  - Nephrolithiasis [Unknown]
  - Renal cancer recurrent [Unknown]
  - Osteoporosis [Unknown]
  - Aortic aneurysm [Unknown]
  - Constipation [Unknown]
  - Dysphagia [Unknown]
  - Chronic obstructive pulmonary disease [Unknown]
  - Osteopenia [Unknown]
  - Hypertension [Unknown]
  - Osteoarthritis [Unknown]
  - Blood cholesterol increased [Unknown]
